FAERS Safety Report 4918232-2 (Version None)
Quarter: 2006Q1

REPORT INFORMATION
  Report Type: 
  Country: None (occurrence: None)
  Receive Date: 20060215
  Receipt Date: 20060130
  Transmission Date: 20060701
  Serious: Yes (Hospitalization)
  Sender: FDA-Public Use
  Company Number: 2093

PATIENT
  Age: 74 Year
  Sex: Male

DRUGS (1)
  1. TARGRETIN [Suspect]
     Indication: ACUTE MYELOID LEUKAEMIA
     Dosage: 300 MG QD PO
     Route: 048
     Dates: start: 20050202, end: 20050527

REACTIONS (6)
  - ATRIAL FIBRILLATION [None]
  - COUGH [None]
  - DISEASE PROGRESSION [None]
  - HAEMOGLOBIN DECREASED [None]
  - PLATELET COUNT DECREASED [None]
  - RETINOIC ACID SYNDROME [None]
